FAERS Safety Report 15017614 (Version 1)
Quarter: 2018Q2

REPORT INFORMATION
  Report Type: Spontaneous
  Country: ZA (occurrence: ZA)
  Receive Date: 20180615
  Receipt Date: 20180615
  Transmission Date: 20180711
  Serious: Yes (Other)
  Sender: FDA-Public Use
  Company Number: ZA-PFIZER INC-2018240679

PATIENT
  Age: 85 Year
  Sex: Male

DRUGS (11)
  1. CLOPIWIN PLUS [Suspect]
     Active Substance: ASPIRIN\CLOPIDOGREL BISULFATE
     Dosage: 75/75 MG
  2. ELTROXIN [Suspect]
     Active Substance: LEVOTHYROXINE
     Dosage: 50 UG, UNK
  3. PRITOR /01102601/ [Suspect]
     Active Substance: TELMISARTAN
     Dosage: 80 MG, UNK
  4. LYRICA [Suspect]
     Active Substance: PREGABALIN
     Dosage: 75 MG, UNK
  5. STILPANE /01152401/ [Suspect]
     Active Substance: ACETAMINOPHEN\CAFFEINE\CODEINE PHOSPHATE\MEPROBAMATE
     Dosage: UNK
  6. ASPAVOR [Suspect]
     Active Substance: ATORVASTATIN
     Dosage: 20 MG, UNK
  7. PANTOCID /01263204/ [Suspect]
     Active Substance: PANTOPRAZOLE SODIUM
     Dosage: 40 MG, UNK
  8. CARLOC [Suspect]
     Active Substance: CARVEDILOL
     Dosage: 12.5 MG, UNK
  9. EPILIZINE [Suspect]
     Active Substance: VALPROATE SODIUM
     Dosage: 300 MG, UNK
  10. SLOW-MAG [Suspect]
     Active Substance: MAGNESIUM CHLORIDE
     Dosage: 450 MG, UNK
  11. BIGSENS [Suspect]
     Active Substance: METFORMIN HYDROCHLORIDE
     Dosage: 1000 MG, UNK

REACTIONS (3)
  - Cerebrovascular accident [Unknown]
  - Aphasia [Not Recovered/Not Resolved]
  - Paralysis [Not Recovered/Not Resolved]
